FAERS Safety Report 9828722 (Version 2)
Quarter: 2014Q1

REPORT INFORMATION
  Report Type: Spontaneous
  Country: JP (occurrence: JP)
  Receive Date: 20140117
  Receipt Date: 20140130
  Transmission Date: 20141002
  Serious: Yes (Hospitalization)
  Sender: FDA-Public Use
  Company Number: JP-TAKEDA-2014TUS000341

PATIENT
  Sex: 0

DRUGS (13)
  1. FEBURIC [Suspect]
     Indication: HYPERURICAEMIA
     Dosage: 10 MG, QD
     Route: 048
     Dates: start: 20131218, end: 20140106
  2. PLAVIX [Suspect]
     Indication: CORONARY ARTERIAL STENT INSERTION
     Dosage: 75 MG,QD
     Route: 048
     Dates: start: 20131122, end: 20140109
  3. MEXITIL [Suspect]
     Indication: VENTRICULAR EXTRASYSTOLES
     Dosage: 200 MG, QD
     Route: 048
     Dates: start: 20131203, end: 20140106
  4. BAYASPIRIN [Concomitant]
     Indication: ANGINA PECTORIS
     Dosage: 100 MG, QD
     Route: 048
     Dates: start: 20131022
  5. DIART [Concomitant]
     Indication: ANGINA PECTORIS
     Dosage: 60 MG, QD
     Route: 048
     Dates: start: 20131121, end: 20140106
  6. ALDACTONE A [Concomitant]
     Indication: ANGINA PECTORIS
     Dosage: 25 MG, QD
     Route: 048
     Dates: start: 20131122, end: 20140106
  7. FLUITRAN [Concomitant]
     Indication: ANGINA PECTORIS
     Dosage: 1 MG, QD
     Route: 048
     Dates: start: 20131206, end: 20140106
  8. RENIVACE [Concomitant]
     Indication: HYPERTENSION
     Dosage: 2.5 MG, QD
     Route: 048
     Dates: start: 20131223, end: 20140109
  9. ARTIST [Concomitant]
     Indication: ANGINA PECTORIS
     Dosage: 1.25 MG, QD
     Route: 048
     Dates: start: 20131026, end: 20140109
  10. NEXIUM                             /01479302/ [Concomitant]
     Indication: GASTRIC ULCER
     Dosage: 15 MG, QD
     Route: 048
     Dates: start: 20131022, end: 20140103
  11. SIGMART [Concomitant]
     Indication: ANGINA PECTORIS
     Dosage: 15 MG, QD
     Route: 048
     Dates: start: 20131022, end: 20140109
  12. CRESTOR [Concomitant]
     Indication: DYSLIPIDAEMIA
     Dosage: 2.5 MG, QD
     Route: 048
     Dates: start: 20131022, end: 20140106
  13. FRANDOL [Concomitant]
     Indication: ANGINA PECTORIS
     Dosage: 40 MG, QD
     Route: 062
     Dates: start: 20131022, end: 20131022

REACTIONS (3)
  - Renal tubular necrosis [Recovering/Resolving]
  - Drug-induced liver injury [Recovering/Resolving]
  - Rash [Recovering/Resolving]
